FAERS Safety Report 10073046 (Version 3)
Quarter: 2014Q3

REPORT INFORMATION
  Report Type: Spontaneous
  Country: US (occurrence: US)
  Receive Date: 20140411
  Receipt Date: 20140709
  Transmission Date: 20150326
  Serious: Yes (Hospitalization, Other)
  Sender: FDA-Public Use
  Company Number: US-PFIZER INC-2014099542

PATIENT
  Age: 68 Year
  Sex: Female
  Weight: 93.42 kg

DRUGS (27)
  1. GLYBURIDE. [Concomitant]
     Active Substance: GLYBURIDE
     Indication: DIABETES MELLITUS
     Dosage: 5 MG, 2X/DAY
  2. ALDACTONE [Concomitant]
     Active Substance: SPIRONOLACTONE
     Dosage: 25 MG, 2X/DAY
     Route: 048
  3. PROTONIX [Concomitant]
     Active Substance: PANTOPRAZOLE SODIUM
     Dosage: 40 MG, DAILY
     Route: 048
  4. BUMEX [Concomitant]
     Active Substance: BUMETANIDE
     Dosage: 1 TABLET (2 MG TOTAL) BY MOUTH 2 (TWO) TIMES DAILY, (TAKE EXTRA MORNING DOSE TWICE WEEKLY)
     Route: 048
     Dates: start: 20140528
  5. ZYRTEC [Concomitant]
     Active Substance: CETIRIZINE HYDROCHLORIDE
     Dosage: 10 MG, DAILY
     Route: 048
  6. MAG-OX [Concomitant]
     Dosage: 250MG , 2X/DAY (250MG, THREE TABLETS TWICE DAILY)
     Route: 048
  7. OMEGA 3-DHA-EPA-FISH OIL [Concomitant]
     Dosage: 1200 MG, DAILY
     Route: 048
  8. KLOR-CON [Concomitant]
     Active Substance: POTASSIUM CHLORIDE
     Dosage: 20 MG, 2X/DAY
     Route: 048
  9. DIABETA [Concomitant]
     Active Substance: GLYBURIDE
     Dosage: 5 MG, 2X/DAY DAILY WITH MEALS
     Route: 048
  10. REVATIO [Suspect]
     Active Substance: SILDENAFIL CITRATE
     Indication: PULMONARY HYPERTENSION
     Dosage: 60 MG, 3X/DAY
  11. REVATIO [Suspect]
     Active Substance: SILDENAFIL CITRATE
     Dosage: 20 MG, 3X/DAY
  12. BUMEX [Concomitant]
     Active Substance: BUMETANIDE
     Dosage: 2 MG, 2X/DAY
     Route: 048
  13. ALDACTONE [Concomitant]
     Active Substance: SPIRONOLACTONE
     Dosage: 25 MG, DAILY
     Route: 048
  14. ASPIRIN. [Concomitant]
     Active Substance: ASPIRIN
     Dosage: 81 MG, DAILY, TAKE WITH FOOD
     Route: 048
  15. CARDIZEM CD [Concomitant]
     Active Substance: DILTIAZEM HYDROCHLORIDE
     Dosage: 240 MG, DAILY
     Route: 048
  16. LIPITOR [Concomitant]
     Active Substance: ATORVASTATIN CALCIUM
     Dosage: 40 MG, 1X/DAY (BY MOUTH NIGHTLY)
     Route: 048
  17. DILTIAZEM [Concomitant]
     Active Substance: DILTIAZEM
     Dosage: 240 MG, DAILY
  18. FLONASE [Concomitant]
     Active Substance: FLUTICASONE PROPIONATE
     Dosage: 50MCG/ ACTUATION, 2X/DAY (1 SPRAY BY NASAL ROUTE)
     Route: 045
  19. KLOR-CON [Concomitant]
     Active Substance: POTASSIUM CHLORIDE
     Dosage: 20 MEQ, 2X/DAY, TAKE EXTRA KCL PILL TWICE WEEKLY
     Route: 048
     Dates: start: 20140528
  20. OS-CAL [Concomitant]
     Dosage: 600 MG, 2X/DAY DAILY WITH MEALS
     Route: 048
  21. VITAMIN D3 [Concomitant]
     Active Substance: CHOLECALCIFEROL
     Dosage: TAKE 2000 UNITS BY MOUTH DAILY
     Route: 048
  22. SYNTHROID [Concomitant]
     Active Substance: LEVOTHYROXINE SODIUM
     Dosage: 175 UG, DAILY
     Route: 048
  23. K-DUR [Concomitant]
     Active Substance: POTASSIUM CHLORIDE
     Dosage: 20 MEQ, 2X/DAY, TAKE EXTRA KCL PILL TWICE WEEKLY
     Dates: start: 20140528
  24. COUMADIN [Concomitant]
     Active Substance: WARFARIN SODIUM
     Dosage: 6 MG, UNK (PATIENT TAKES 6 MG ON SUNDAY, MONDAY, TUESDAY, WEDNESDAY, THURSDAY, AND SATURDAY)
     Route: 048
  25. COUMADIN [Concomitant]
     Active Substance: WARFARIN SODIUM
     Dosage: 5.5 MG, UNK (FRIDAYS PATIENT TAKES 5 1/2 MG)
  26. PEPCID [Concomitant]
     Active Substance: FAMOTIDINE
     Dosage: 20 MG, 2X/DAY (DAILY WITH MEALS)
     Route: 048
  27. VOLTAREN [Concomitant]
     Active Substance: DICLOFENAC SODIUM
     Dosage: 1% GEL, AS NEEDED

REACTIONS (6)
  - Dyspnoea [Unknown]
  - Cardiac valve vegetation [Unknown]
  - Dyspnoea exertional [Unknown]
  - Mitral valve disease [Unknown]
  - Oedema [Unknown]
  - Chest pain [Unknown]
